FAERS Safety Report 25617710 (Version 1)
Quarter: 2025Q3

REPORT INFORMATION
  Report Type: Spontaneous
  Country: US (occurrence: US)
  Receive Date: 20250729
  Receipt Date: 20250729
  Transmission Date: 20251020
  Serious: Yes (Other)
  Sender: PFIZER
  Company Number: US-PFIZER INC-202500151324

PATIENT
  Age: 17 Year
  Sex: Female

DRUGS (1)
  1. VELSIPITY [Suspect]
     Active Substance: ETRASIMOD ARGININE
     Dosage: 1 TABLET(S) DAILY
     Route: 048

REACTIONS (10)
  - Rectal haemorrhage [Unknown]
  - Colitis ulcerative [Unknown]
  - Diarrhoea [Not Recovered/Not Resolved]
  - Abdominal pain [Recovering/Resolving]
  - Defaecation urgency [Unknown]
  - Weight decreased [Unknown]
  - Fatigue [Not Recovered/Not Resolved]
  - Amenorrhoea [Not Recovered/Not Resolved]
  - Faecal calprotectin increased [Unknown]
  - Constipation [Unknown]

NARRATIVE: CASE EVENT DATE: 20250201
